FAERS Safety Report 5070132-6 (Version None)
Quarter: 2006Q3

REPORT INFORMATION
  Report Type: 
  Country: None (occurrence: None)
  Receive Date: 20060802
  Receipt Date: 20060802
  Transmission Date: 20061208
  Serious: Yes (Hospitalization)
  Sender: FDA-Public Use
  Company Number: None

PATIENT
  Age: 61 Year
  Sex: Female

DRUGS (1)
  1. DARBEPOETIN ALFA, AMGEN [Suspect]
     Indication: ANAEMIA OF MALIGNANT DISEASE
     Dosage: 300 MCG
     Dates: start: 20051221

REACTIONS (4)
  - METASTASES TO BONE MARROW [None]
  - MUSCLE SWELLING [None]
  - MYOSITIS [None]
  - PAIN IN EXTREMITY [None]
